FAERS Safety Report 7434954-6 (Version None)
Quarter: 2011Q2

REPORT INFORMATION
  Report Type: 
  Country: None (occurrence: None)
  Receive Date: 20110425
  Receipt Date: 20110412
  Transmission Date: 20111010
  Serious: Yes (Death, Hospitalization)
  Sender: FDA-Public Use
  Company Number: DE-ROCHE-772429

PATIENT
  Sex: Male

DRUGS (7)
  1. PREDNISOLONE [Concomitant]
  2. CALCIA WITH VITAMIN D [Concomitant]
  3. PANTOZOL [Concomitant]
  4. EVEROLIMUS [Suspect]
     Route: 048
     Dates: start: 20100202
  5. TAMSULOSIN [Concomitant]
  6. BEVACIZUMAB [Suspect]
     Dosage: THERAPY DURATION : 12 MONTH
     Route: 065
     Dates: start: 20100202, end: 20110301
  7. IRENAT [Concomitant]

REACTIONS (2)
  - CONVULSION [None]
  - HEADACHE [None]
